FAERS Safety Report 24409558 (Version 1)
Quarter: 2024Q4

REPORT INFORMATION
  Report Type: Other
  Country: US (occurrence: US)
  Receive Date: 20241008
  Receipt Date: 20241008
  Transmission Date: 20250115
  Serious: Yes (Hospitalization)
  Sender: APPCO PHARMA
  Company Number: US-Appco Pharma LLC-2162626

PATIENT
  Age: 64 Year
  Sex: Male

DRUGS (15)
  1. SILDENAFIL CITRATE [Suspect]
     Active Substance: SILDENAFIL CITRATE
     Indication: Erectile dysfunction
  2. FUROSEMIDE [Interacting]
     Active Substance: FUROSEMIDE
  3. BUPRENORPHINE AND NALOXONE [Interacting]
     Active Substance: BUPRENORPHINE HYDROCHLORIDE\NALOXONE HYDROCHLORIDE
  4. ALBUTEROL [Interacting]
     Active Substance: ALBUTEROL
  5. ALBUTEROL\IPRATROPIUM [Interacting]
     Active Substance: ALBUTEROL\IPRATROPIUM
  6. GABAPENTIN [Interacting]
     Active Substance: GABAPENTIN
  7. CHOLECALCIFEROL [Interacting]
     Active Substance: CHOLECALCIFEROL
  8. DOCUSATE [Interacting]
     Active Substance: DOCUSATE
  9. FERROUS SULFATE [Interacting]
     Active Substance: FERROUS SULFATE
  10. ACYCLOVIR [Interacting]
     Active Substance: ACYCLOVIR
  11. TESTOSTERONE [Interacting]
     Active Substance: TESTOSTERONE
  12. BUPROPION [Interacting]
     Active Substance: BUPROPION
  13. POTASSIUM CHLORIDE [Interacting]
     Active Substance: POTASSIUM CHLORIDE
  14. SOFOSBUVIR AND VELPATASVIR [Interacting]
     Active Substance: SOFOSBUVIR\VELPATASVIR
  15. PANTOPRAZOLE SODIUM [Interacting]
     Active Substance: PANTOPRAZOLE SODIUM

REACTIONS (2)
  - Drug interaction [Unknown]
  - Mental status changes [Recovered/Resolved]
